FAERS Safety Report 21488038 (Version 1)
Quarter: 2022Q4

REPORT INFORMATION
  Report Type: Spontaneous
  Country: JP (occurrence: JP)
  Receive Date: 20221020
  Receipt Date: 20221020
  Transmission Date: 20230113
  Serious: Yes (Life-Threatening, Hospitalization)
  Sender: FDA-Public Use
  Company Number: JP-PRINSTON PHARMACEUTICAL INC.-2022PRN00381

PATIENT
  Age: 51 Year
  Sex: Male

DRUGS (4)
  1. LEVETIRACETAM [Suspect]
     Active Substance: LEVETIRACETAM
     Dosage: 200,000 MG
     Route: 048
  2. TELMISARTAN [Suspect]
     Active Substance: TELMISARTAN
     Dosage: 480 MG
     Route: 048
  3. AMLODIPINE [Suspect]
     Active Substance: AMLODIPINE BESYLATE
     Dosage: 30 MG
     Route: 048
  4. BROTIZOLAM [Suspect]
     Active Substance: BROTIZOLAM
     Dosage: 1.5 MG
     Route: 048

REACTIONS (5)
  - Hypotension [Recovered/Resolved]
  - Overdose [Recovered/Resolved]
  - Altered state of consciousness [Recovered/Resolved]
  - Renal failure [Recovered/Resolved]
  - Suicide attempt [Recovered/Resolved]
